FAERS Safety Report 14173112 (Version 1)
Quarter: 2017Q4

REPORT INFORMATION
  Report Type: Spontaneous
  Country: US (occurrence: None)
  Receive Date: 20171108
  Receipt Date: 20171108
  Transmission Date: 20180321
  Serious: No
  Sender: FDA-Public Use
  Company Number: None

PATIENT
  Age: 64 Year
  Sex: Male

DRUGS (1)
  1. STELARA [Suspect]
     Active Substance: USTEKINUMAB
     Indication: PSORIASIS
     Dosage: 45MG Q 12 WEEKS SQ
     Route: 058
     Dates: start: 20170228

REACTIONS (2)
  - Headache [None]
  - Visual impairment [None]

NARRATIVE: CASE EVENT DATE: 20170808
